FAERS Safety Report 8172792 (Version 7)
Quarter: 2014Q1

REPORT INFORMATION
  Report Type: Spontaneous
  Country: US (occurrence: US)
  Receive Date: 20111007
  Receipt Date: 20140110
  Transmission Date: 20141002
  Serious: Yes (Hospitalization)
  Sender: FDA-Public Use
  Company Number: US-GLAXOSMITHKLINE-B0752876A

PATIENT
  Age: 53 Year
  Sex: Female
  Weight: 97.3 kg

DRUGS (1)
  1. AVANDIA [Suspect]
     Indication: DIABETES MELLITUS
     Dosage: 8MG PER DAY
     Route: 048
     Dates: start: 20020422, end: 20070609

REACTIONS (2)
  - Cardiac failure congestive [Not Recovered/Not Resolved]
  - Cough [Unknown]
